FAERS Safety Report 10216301 (Version 3)
Quarter: 2014Q2

REPORT INFORMATION
  Report Type: Spontaneous
  Country: IQ (occurrence: IQ)
  Receive Date: 20140604
  Receipt Date: 20140624
  Transmission Date: 20141212
  Serious: Yes (Death, Life-Threatening, Hospitalization)
  Sender: FDA-Public Use
  Company Number: IQ-SA-2014SA070849

PATIENT
  Age: 14 Year
  Sex: Male

DRUGS (1)
  1. EVOLTRA [Suspect]
     Indication: ACUTE LYMPHOCYTIC LEUKAEMIA RECURRENT
     Dosage: 2 HOUR INFUSION
     Route: 042
     Dates: start: 20140521, end: 20140525

REACTIONS (4)
  - Neutropenia [Fatal]
  - Ejection fraction decreased [Recovered/Resolved]
  - Sepsis [Fatal]
  - Lower respiratory tract infection [Fatal]
